FAERS Safety Report 5035800-0 (Version None)
Quarter: 2006Q2

REPORT INFORMATION
  Report Type: 
  Country: None (occurrence: None)
  Receive Date: 20060526
  Receipt Date: 20060426
  Transmission Date: 20061013
  Serious: No
  Sender: FDA-Public Use
  Company Number: FABR-11509

PATIENT
  Age: 58 Year
  Sex: Female
  Weight: 90.9 kg

DRUGS (1)
  1. FABRAZYME [Suspect]
     Indication: FABRY'S DISEASE
     Dosage: 90.9 MG Q2WKS  IV
     Route: 042
     Dates: start: 20051122

REACTIONS (1)
  - JUGULAR VEIN THROMBOSIS [None]
